FAERS Safety Report 8271905-9 (Version None)
Quarter: 2012Q2

REPORT INFORMATION
  Report Type: 
  Country: None (occurrence: None)
  Receive Date: 20120410
  Receipt Date: 20120404
  Transmission Date: 20120825
  Serious: Yes (Other)
  Sender: FDA-Public Use
  Company Number: IE-US-EMD SERONO, INC.-7047963

PATIENT
  Sex: Female

DRUGS (7)
  1. LEXAPRO [Concomitant]
     Indication: DEPRESSION
  2. REBIF [Suspect]
     Indication: RELAPSING-REMITTING MULTIPLE SCLEROSIS
     Route: 058
     Dates: start: 20050627
  3. OMSIL (TAMSULOSIN) [Concomitant]
     Indication: KIDNEY INFECTION
  4. AMLID (AMLODIPINE) [Concomitant]
     Indication: HYPERTENSION
  5. TOLTERODINE TARTRATE [Concomitant]
     Indication: BLADDER DISORDER
  6. NEXAZOLE (ESOMEPRAZOLE) [Concomitant]
     Indication: GASTRIC DISORDER
  7. LIORESAL [Concomitant]
     Indication: MUSCLE SPASMS

REACTIONS (5)
  - JOINT STIFFNESS [None]
  - KIDNEY INFECTION [None]
  - MOBILITY DECREASED [None]
  - ARTHRALGIA [None]
  - HYPOAESTHESIA [None]
